FAERS Safety Report 5777059-2 (Version None)
Quarter: 2008Q2

REPORT INFORMATION
  Report Type: 
  Country: None (occurrence: None)
  Receive Date: 20080618
  Receipt Date: 20080610
  Transmission Date: 20081010
  Serious: Yes (Hospitalization, Disabling)
  Sender: FDA-Public Use
  Company Number: FR-ASTRAZENECA-2007CG01785

PATIENT
  Age: 28017 Day
  Sex: Female
  Weight: 60 kg

DRUGS (6)
  1. ARIMIDEX [Suspect]
     Indication: BREAST CANCER FEMALE
     Route: 048
     Dates: start: 20070701, end: 20071101
  2. ARIMIDEX [Suspect]
     Route: 048
     Dates: start: 20080101, end: 20080201
  3. RADIOTHERAPY [Suspect]
     Indication: BREAST CANCER FEMALE
     Dosage: 25 GRAY RECEIVED
     Dates: start: 20070801, end: 20071119
  4. BACTRIM [Concomitant]
     Dates: start: 20071201, end: 20071213
  5. EPIRUBICIN [Concomitant]
     Indication: BREAST CANCER FEMALE
     Dates: start: 20070401
  6. ENDOXAN [Concomitant]
     Indication: BREAST CANCER FEMALE
     Dates: start: 20070401

REACTIONS (2)
  - BONE MARROW FAILURE [None]
  - PAIN [None]
